FAERS Safety Report 9929107 (Version 1)
Quarter: 2014Q1

REPORT INFORMATION
  Report Type: Spontaneous
  Country: US (occurrence: US)
  Receive Date: 20140227
  Receipt Date: 20140227
  Transmission Date: 20141002
  Serious: Yes (Hospitalization)
  Sender: FDA-Public Use
  Company Number: US-ASTRAZENECA-2014SE12285

PATIENT
  Sex: Male

DRUGS (1)
  1. RHINOCORT AQUA [Suspect]
     Route: 045

REACTIONS (2)
  - Sepsis [Unknown]
  - Sinus disorder [Unknown]
